FAERS Safety Report 16790480 (Version 1)
Quarter: 2019Q3

REPORT INFORMATION
  Report Type: Spontaneous
  Country: US (occurrence: US)
  Receive Date: 20190910
  Receipt Date: 20190910
  Transmission Date: 20191005
  Serious: No
  Sender: FDA-Public Use
  Company Number: US-PFIZER INC-2019351576

PATIENT
  Age: 56 Year
  Sex: Female

DRUGS (1)
  1. XELJANZ [Suspect]
     Active Substance: TOFACITINIB CITRATE
     Dosage: 5 MG, 1 TABLET DAILY FOR 10 DAYS THEN INCREASE TO TWICE DAILY (IF TOLERATED WELL)
     Dates: start: 20190815

REACTIONS (3)
  - Dizziness [Unknown]
  - Sinus headache [Unknown]
  - Temperature intolerance [Unknown]
